FAERS Safety Report 6100027-8 (Version None)
Quarter: 2009Q1

REPORT INFORMATION
  Report Type: 
  Country: None (occurrence: None)
  Receive Date: 20090303
  Receipt Date: 20090227
  Transmission Date: 20090719
  Serious: Yes (Other)
  Sender: FDA-Public Use
  Company Number: B0557683A

PATIENT
  Age: 83 Year
  Sex: Female

DRUGS (4)
  1. ARIXTRA [Suspect]
     Indication: THROMBOSIS PROPHYLAXIS
     Route: 058
     Dates: start: 20080821
  2. COMELIAN [Concomitant]
     Dosage: 100MG PER DAY
     Route: 048
  3. AMLODIPINE [Concomitant]
     Dosage: 25MG PER DAY
     Route: 048
  4. DIPYRIDAMOLE [Concomitant]
     Dosage: 25MG PER DAY
     Route: 048

REACTIONS (2)
  - EFFUSION [None]
  - POST PROCEDURAL HAEMORRHAGE [None]
